FAERS Safety Report 9264008 (Version 1)
Quarter: 2013Q2

REPORT INFORMATION
  Report Type: Spontaneous
  Country: US (occurrence: US)
  Receive Date: 20130430
  Receipt Date: 20130430
  Transmission Date: 20140414
  Serious: Yes (Death, Other)
  Sender: FDA-Public Use
  Company Number: US-ACTAVIS-2013-07127

PATIENT
  Age: 13 Month
  Sex: Male
  Weight: 10 kg

DRUGS (1)
  1. BUPRENORPHINE-NALOXONE (AELLC) [Suspect]
     Indication: ACCIDENTAL EXPOSURE TO PRODUCT BY CHILD
     Dosage: 8 MG/2 MG
     Route: 048

REACTIONS (5)
  - Respiratory depression [Fatal]
  - Unresponsive to stimuli [Fatal]
  - Apnoea [Fatal]
  - Pulse absent [Fatal]
  - Accidental exposure to product by child [Fatal]
